FAERS Safety Report 7986755 (Version 3)
Quarter: 2013Q2

REPORT INFORMATION
  Report Type: Spontaneous
  Country: US (occurrence: US)
  Receive Date: 20110613
  Receipt Date: 20130607
  Transmission Date: 20140414
  Serious: No
  Sender: FDA-Public Use
  Company Number: US-BIOGENIDEC-2011BI021104

PATIENT
  Age: 54 Year
  Sex: Female

DRUGS (4)
  1. TYSABRI [Suspect]
     Indication: MULTIPLE SCLEROSIS
     Route: 042
     Dates: start: 20110602
  2. CHROMAGEN FA [Concomitant]
     Indication: HAEMOGLOBIN DECREASED
  3. FERGON [Concomitant]
     Indication: HAEMOGLOBIN DECREASED
     Dates: start: 201108
  4. ANTIBIOTICS [Concomitant]
     Indication: CYSTITIS

REACTIONS (12)
  - Poor venous access [Not Recovered/Not Resolved]
  - Pain [Recovered/Resolved]
  - Fall [Recovered/Resolved]
  - Contusion [Recovered/Resolved]
  - Haemoglobin decreased [Unknown]
  - Haematocrit decreased [Unknown]
  - Viral infection [Recovered/Resolved]
  - Headache [Not Recovered/Not Resolved]
  - Fatigue [Recovered/Resolved]
  - Cystitis [Recovered/Resolved]
  - Infusion site bruising [Not Recovered/Not Resolved]
  - Multiple sclerosis relapse [Recovered/Resolved]
